FAERS Safety Report 7925331-X (Version None)
Quarter: 2011Q4

REPORT INFORMATION
  Report Type: 
  Country: None (occurrence: None)
  Receive Date: 20111118
  Receipt Date: 20110405
  Transmission Date: 20120403
  Serious: No
  Sender: FDA-Public Use
  Company Number: US-AMGEN-USASP2011017972

PATIENT
  Age: 68 Year
  Sex: Female

DRUGS (1)
  1. ENBREL [Suspect]
     Indication: RHEUMATOID ARTHRITIS
     Dosage: 50 MG, QWK
     Dates: start: 20100118

REACTIONS (5)
  - SPUTUM DISCOLOURED [None]
  - PARANASAL SINUS HYPERSECRETION [None]
  - BRONCHITIS [None]
  - CATARACT [None]
  - INFECTION [None]
